FAERS Safety Report 4852759-7 (Version None)
Quarter: 2005Q4

REPORT INFORMATION
  Report Type: 
  Country: None (occurrence: None)
  Receive Date: 20051125
  Receipt Date: 20050424
  Transmission Date: 20060501
  Serious: Yes (Other)
  Sender: FDA-Public Use
  Company Number: HQWYE507704MAY05

PATIENT

DRUGS (1)
  1. ZOSYN [Suspect]

REACTIONS (1)
  - PANCYTOPENIA [None]
